FAERS Safety Report 6543207-X (Version None)
Quarter: 2010Q1

REPORT INFORMATION
  Report Type: 
  Country: None (occurrence: None)
  Receive Date: 20100120
  Receipt Date: 20100114
  Transmission Date: 20100710
  Serious: Yes (Other)
  Sender: FDA-Public Use
  Company Number: US-BRISTOL-MYERS SQUIBB COMPANY-14919815

PATIENT
  Sex: Male

DRUGS (4)
  1. CISPLATIN [Suspect]
     Indication: MEDULLOBLASTOMA
     Dosage: COMPLETED CHEMO IN OCT2001 AFTER A CUMULATIVE DOSE OF CISPLATIN 450 MG/M2.
     Dates: start: 20010201, end: 20011001
  2. LOMUSTINE [Suspect]
     Indication: MEDULLOBLASTOMA
     Dates: start: 20010201, end: 20011001
  3. VINCRISTINE SULFATE [Suspect]
     Indication: MEDULLOBLASTOMA
     Dates: start: 20010201, end: 20011001
  4. RADIATION THERAPY [Suspect]
     Indication: MEDULLOBLASTOMA
     Dosage: CRANIOSPINAL RADN (2340CGY TO THE SPINE AND WHOLE BRAIN + A 3240 CGY BOOST TO THE POSTERIOR FOSSA)
     Dates: start: 20010201, end: 20010101

REACTIONS (1)
  - DEAFNESS [None]
